FAERS Safety Report 16813946 (Version 6)
Quarter: 2020Q4

REPORT INFORMATION
  Report Type: Spontaneous
  Country: US (occurrence: US)
  Receive Date: 20190917
  Receipt Date: 20201019
  Transmission Date: 20210113
  Serious: Yes (Other)
  Sender: FDA-Public Use
  Company Number: US-GILEAD-2019-0428026

PATIENT
  Age: 50 Year
  Sex: Male
  Weight: 96.15 kg

DRUGS (71)
  1. ALDARA [Concomitant]
     Active Substance: IMIQUIMOD
  2. AZITHROMYCIN ANHYDROUS. [Concomitant]
     Active Substance: AZITHROMYCIN ANHYDROUS
  3. CONDYLOX [Concomitant]
     Active Substance: PODOFILOX
  4. SERTRALINE [Concomitant]
     Active Substance: SERTRALINE HYDROCHLORIDE
  5. PROAIR HFA [Concomitant]
     Active Substance: ALBUTEROL SULFATE
  6. TRUVADA [Suspect]
     Active Substance: EMTRICITABINE\TENOFOVIR DISOPROXIL FUMARATE
     Indication: HIV INFECTION
     Dosage: UNK
     Route: 048
     Dates: start: 20100907, end: 20160715
  7. PERCOCET [OXYCODONE HYDROCHLORIDE;OXYCODONE TEREPHTHALATE;PARACETAMOL] [Concomitant]
     Active Substance: ACETAMINOPHEN\OXYCODONE HYDROCHLORIDE\OXYCODONE TEREPHTHALATE
  8. GABITRIL [Concomitant]
     Active Substance: TIAGABINE HYDROCHLORIDE
  9. CICLOPIROX. [Concomitant]
     Active Substance: CICLOPIROX
  10. GLIPIZIDE. [Concomitant]
     Active Substance: GLIPIZIDE
  11. QUETIAPINE FUMARATE. [Concomitant]
     Active Substance: QUETIAPINE FUMARATE
  12. AMOXICILLIN TRIHYDRATE;CLAVULANATE POTASSIUM [Concomitant]
     Active Substance: AMOXICILLIN\CLAVULANATE POTASSIUM
  13. OXYCODONE [Concomitant]
     Active Substance: OXYCODONE
  14. ONDANSETRON [Concomitant]
     Active Substance: ONDANSETRON
  15. SILDENAFIL. [Concomitant]
     Active Substance: SILDENAFIL
  16. ROSUVASTATIN CALCIUM. [Concomitant]
     Active Substance: ROSUVASTATIN CALCIUM
  17. PROCHLORPERAZINE. [Concomitant]
     Active Substance: PROCHLORPERAZINE
  18. TESTOSTERONE CYPIONATE. [Concomitant]
     Active Substance: TESTOSTERONE CYPIONATE
  19. TRUVADA [Suspect]
     Active Substance: EMTRICITABINE\TENOFOVIR DISOPROXIL FUMARATE
     Dosage: UNK
     Route: 065
     Dates: start: 20120308, end: 20160715
  20. NYSTATIN. [Concomitant]
     Active Substance: NYSTATIN
  21. TRESIBA [Concomitant]
     Active Substance: INSULIN DEGLUDEC
  22. VASCEPA [Concomitant]
     Active Substance: ICOSAPENT ETHYL
  23. LISINOPRIL. [Concomitant]
     Active Substance: LISINOPRIL
  24. HYDROXYZINE [Concomitant]
     Active Substance: HYDROXYZINE HYDROCHLORIDE
  25. ALLOPURINOL. [Concomitant]
     Active Substance: ALLOPURINOL
  26. MOXIFLOXACIN. [Concomitant]
     Active Substance: MOXIFLOXACIN
  27. PURELAX [Concomitant]
     Active Substance: POLYETHYLENE GLYCOL 3350
  28. TOUJEO [Concomitant]
     Active Substance: INSULIN GLARGINE
  29. BUPROPION HYDROCHLORIDE XL [Concomitant]
     Active Substance: BUPROPION HYDROCHLORIDE
  30. LYRICA [Concomitant]
     Active Substance: PREGABALIN
  31. ALPHAGAN P [Concomitant]
     Active Substance: BRIMONIDINE TARTRATE
  32. TRAVATAN [Concomitant]
     Active Substance: TRAVOPROST
  33. LIDOCAINE HCL [Concomitant]
     Active Substance: LIDOCAINE HYDROCHLORIDE
  34. ZETIA [Concomitant]
     Active Substance: EZETIMIBE
  35. LOTEMAX [Concomitant]
     Active Substance: LOTEPREDNOL ETABONATE
  36. NEOMYCIN. [Concomitant]
     Active Substance: NEOMYCIN
  37. DESCOVY [Concomitant]
     Active Substance: EMTRICITABINE\TENOFOVIR ALAFENAMIDE FUMARATE
  38. BYDUREON [Concomitant]
     Active Substance: EXENATIDE
  39. VITAMIN D2 [Concomitant]
     Active Substance: ERGOCALCIFEROL
  40. AMITRIPTYLINE [Concomitant]
     Active Substance: AMITRIPTYLINE
  41. TAMSULOSIN [Concomitant]
     Active Substance: TAMSULOSIN
  42. MUPIROCIN. [Concomitant]
     Active Substance: MUPIROCIN
  43. X-VIATE [Concomitant]
     Active Substance: UREA
  44. ADVAIR HFA [Concomitant]
     Active Substance: FLUTICASONE PROPIONATE\SALMETEROL XINAFOATE
  45. CIALIS [Concomitant]
     Active Substance: TADALAFIL
  46. ISENTRESS [Concomitant]
     Active Substance: RALTEGRAVIR POTASSIUM
  47. FEBUXOSTAT. [Concomitant]
     Active Substance: FEBUXOSTAT
  48. AMMONIUM LACTATE. [Concomitant]
     Active Substance: AMMONIUM LACTATE
  49. CETIRIZINE [Concomitant]
     Active Substance: CETIRIZINE HYDROCHLORIDE
  50. TRAZODONE [Concomitant]
     Active Substance: TRAZODONE HYDROCHLORIDE
  51. BISACODYL. [Concomitant]
     Active Substance: BISACODYL
  52. COLLAGENASE SANTYL [Concomitant]
     Active Substance: COLLAGENASE CLOSTRIDIUM HISTOLYTICUM
  53. KALETRA [Concomitant]
     Active Substance: LOPINAVIR\RITONAVIR
  54. METFORMIN HYDROCHLORIDE. [Concomitant]
     Active Substance: METFORMIN HYDROCHLORIDE
  55. SEROQUEL [Concomitant]
     Active Substance: QUETIAPINE FUMARATE
  56. SILVADENE [Concomitant]
     Active Substance: SILVER SULFADIAZINE
  57. OXYCODONE AND ACETAMINOPHEN [Concomitant]
     Active Substance: ACETAMINOPHEN\OXYCODONE HYDROCHLORIDE
  58. SULFAMETHOXAZOLE AND TRIMETHOPRIM [Concomitant]
     Active Substance: SULFAMETHOXAZOLE\TRIMETHOPRIM
  59. PREDNISONE. [Concomitant]
     Active Substance: PREDNISONE
  60. ZOLPIDEM TARTRATE. [Concomitant]
     Active Substance: ZOLPIDEM TARTRATE
  61. ULORIC [Concomitant]
     Active Substance: FEBUXOSTAT
  62. LEVOFLOXACIN. [Concomitant]
     Active Substance: LEVOFLOXACIN
  63. FENOFIBRATE. [Concomitant]
     Active Substance: FENOFIBRATE
  64. INDOMETHACIN [INDOMETACIN] [Concomitant]
     Active Substance: INDOMETHACIN
  65. VENTOLIN [Concomitant]
     Active Substance: ALBUTEROL SULFATE
  66. PROBENECID. [Concomitant]
     Active Substance: PROBENECID
  67. DOXYCYCLINE HYCLATE. [Concomitant]
     Active Substance: DOXYCYCLINE HYCLATE
  68. AVELOX [Concomitant]
     Active Substance: MOXIFLOXACIN HYDROCHLORIDE
  69. PRAVASTATIN SODIUM. [Concomitant]
     Active Substance: PRAVASTATIN SODIUM
  70. TRADJENTA [Concomitant]
     Active Substance: LINAGLIPTIN
  71. IPRATROPIUM [Concomitant]
     Active Substance: IPRATROPIUM

REACTIONS (16)
  - Loss of personal independence in daily activities [Not Recovered/Not Resolved]
  - Anhedonia [Unknown]
  - Tooth loss [Unknown]
  - Economic problem [Unknown]
  - Anxiety [Unknown]
  - Pain [Unknown]
  - Osteoporosis [Not Recovered/Not Resolved]
  - Osteonecrosis [Unknown]
  - Bone density abnormal [Unknown]
  - Muscle atrophy [Not Recovered/Not Resolved]
  - Osteoarthritis [Not Recovered/Not Resolved]
  - Chondropathy [Not Recovered/Not Resolved]
  - Gait disturbance [Not Recovered/Not Resolved]
  - Bone loss [Unknown]
  - Bone density decreased [Not Recovered/Not Resolved]
  - Emotional distress [Unknown]

NARRATIVE: CASE EVENT DATE: 2014
